FAERS Safety Report 23387785 (Version 1)
Quarter: 2024Q1

REPORT INFORMATION
  Report Type: Spontaneous
  Country: TR (occurrence: TR)
  Receive Date: 20240110
  Receipt Date: 20240110
  Transmission Date: 20240410
  Serious: Yes (Life-Threatening, Other)
  Sender: FDA-Public Use
  Company Number: TR-002147023-NVSC2024TR004764

PATIENT
  Age: 40 Year
  Sex: Male

DRUGS (1)
  1. TRILEPTAL [Suspect]
     Active Substance: OXCARBAZEPINE
     Indication: Epilepsy
     Dosage: UNK, QD (AT NIGHT)
     Route: 065

REACTIONS (3)
  - Heart rate irregular [Unknown]
  - Syncope [Unknown]
  - Drug dependence [Unknown]
